FAERS Safety Report 7503878-8 (Version None)
Quarter: 2011Q2

REPORT INFORMATION
  Report Type: 
  Country: None (occurrence: None)
  Receive Date: 20110525
  Receipt Date: 20101220
  Transmission Date: 20111010
  Serious: Yes (Hospitalization, Other)
  Sender: FDA-Public Use
  Company Number: US-BAYER-201026237NA

PATIENT
  Sex: Female
  Weight: 104.31 kg

DRUGS (2)
  1. YAZ [Suspect]
     Indication: PREMENSTRUAL SYNDROME
     Dosage: UNK
     Route: 048
     Dates: start: 20050101, end: 20060101
  2. YASMIN [Suspect]
     Indication: PREMENSTRUAL SYNDROME
     Dosage: UNK
     Route: 048
     Dates: start: 20050101, end: 20060101

REACTIONS (10)
  - EMOTIONAL DISTRESS [None]
  - INFERTILITY FEMALE [None]
  - NAUSEA [None]
  - DEPRESSION [None]
  - VOMITING [None]
  - MENSTRUAL DISORDER [None]
  - PAIN [None]
  - UTERINE HAEMORRHAGE [None]
  - GALLBLADDER INJURY [None]
  - ANXIETY [None]
